APPROVED DRUG PRODUCT: MIDODRINE HYDROCHLORIDE
Active Ingredient: MIDODRINE HYDROCHLORIDE
Strength: 10MG
Dosage Form/Route: TABLET;ORAL
Application: A076514 | Product #003
Applicant: CHARTWELL RX SCIENCES LLC
Approved: Jul 2, 2004 | RLD: No | RS: No | Type: DISCN